FAERS Safety Report 8801648 (Version 1)
Quarter: 2012Q4

REPORT INFORMATION
  Report Type: 
  Country: US (occurrence: US)
  Receive Date: 20120921
  Receipt Date: 20120921
  Transmission Date: 20130627
  Serious: No
  Sender: FDA-Public Use
  Company Number: US-PFIZER INC-2012231610

PATIENT
  Age: 68 Year
  Sex: Male

DRUGS (2)
  1. XALKORI [Suspect]
     Dosage: 250 mg, 2x/day
     Dates: start: 20120913
  2. NEXIUM [Concomitant]
     Dosage: UNK

REACTIONS (1)
  - Abdominal discomfort [Unknown]
